FAERS Safety Report 18840340 (Version 1)
Quarter: 2021Q1

REPORT INFORMATION
  Report Type: Other
  Country: US (occurrence: US)
  Receive Date: 20210204
  Receipt Date: 20210204
  Transmission Date: 20210419
  Serious: Yes (Hospitalization)
  Sender: FDA-Public Use
  Company Number: US-INTERCEPT-PM2021000197

PATIENT
  Sex: Female

DRUGS (1)
  1. OCALIVA [Suspect]
     Active Substance: OBETICHOLIC ACID
     Indication: PRIMARY BILIARY CHOLANGITIS
     Dosage: 5 MILLIGRAM, QD
     Route: 048

REACTIONS (6)
  - Gastrointestinal haemorrhage [Unknown]
  - Pleural effusion [Unknown]
  - Rehabilitation therapy [Recovered/Resolved]
  - Melaena [Unknown]
  - Therapy interrupted [Unknown]
  - Dyspnoea [Unknown]
